FAERS Safety Report 8112328-2 (Version None)
Quarter: 2012Q1

REPORT INFORMATION
  Report Type: 
  Country: None (occurrence: None)
  Receive Date: 20120203
  Receipt Date: 20111214
  Transmission Date: 20120608
  Serious: No
  Sender: FDA-Public Use
  Company Number: US-ASTRAZENECA-2011SE75731

PATIENT
  Age: 76 Year
  Sex: Female

DRUGS (12)
  1. VANDETANIB [Suspect]
     Indication: THYROID CANCER
     Route: 048
  2. HYDROCHLOROTHIAZIDE [Concomitant]
  3. PRILOSEC [Concomitant]
  4. PROMETHAZINE HCL [Concomitant]
  5. PROTONIX [Concomitant]
  6. SIMVASTATIN [Concomitant]
  7. ASPIRIN [Concomitant]
  8. ALENDRONATE SODIUM [Concomitant]
     Route: 048
  9. AMBIEN [Concomitant]
  10. SYNTHROID [Concomitant]
  11. ENALAPRIL MALEATE [Concomitant]
  12. ZOCOR [Concomitant]
     Route: 048

REACTIONS (9)
  - MUSCLE SPASMS [None]
  - DIARRHOEA [None]
  - HOT FLUSH [None]
  - PALPITATIONS [None]
  - HYPERHIDROSIS [None]
  - DYSPNOEA [None]
  - FATIGUE [None]
  - DIZZINESS [None]
  - PAIN [None]
